FAERS Safety Report 6895807-5 (Version None)
Quarter: 2010Q3

REPORT INFORMATION
  Report Type: 
  Country: None (occurrence: None)
  Receive Date: 20100802
  Receipt Date: 20100729
  Transmission Date: 20110219
  Serious: Yes (Other)
  Sender: FDA-Public Use
  Company Number: US-GENZYME-FABR-1001443

PATIENT

DRUGS (2)
  1. FABRAZYME [Suspect]
     Indication: FABRY'S DISEASE
     Dosage: 35 MG, Q4W
     Route: 042
     Dates: start: 20091101
  2. FABRAZYME [Suspect]
     Dosage: 70 MG, Q2W
     Route: 042
     Dates: start: 20050804

REACTIONS (1)
  - EMOTIONAL DISORDER [None]
